FAERS Safety Report 22806150 (Version 2)
Quarter: 2024Q2

REPORT INFORMATION
  Report Type: Spontaneous
  Country: JP (occurrence: JP)
  Receive Date: 20230809
  Receipt Date: 20240402
  Transmission Date: 20240717
  Serious: Yes (Hospitalization)
  Sender: FDA-Public Use
  Company Number: JP-DSJP-DSJ-2023-131860

PATIENT
  Age: 77 Year
  Sex: Female

DRUGS (1)
  1. DENOSUMAB [Suspect]
     Active Substance: DENOSUMAB
     Indication: Osteoporosis
     Dosage: UNK
     Route: 065

REACTIONS (3)
  - Osteomyelitis [Recovering/Resolving]
  - Osteonecrosis of jaw [Recovering/Resolving]
  - Arthritis bacterial [Recovering/Resolving]
